FAERS Safety Report 9102419 (Version 1)
Quarter: 2013Q1

REPORT INFORMATION
  Report Type: Spontaneous
  Country: FR (occurrence: FR)
  Receive Date: 20130219
  Receipt Date: 20130219
  Transmission Date: 20140127
  Serious: Yes (Hospitalization)
  Sender: FDA-Public Use
  Company Number: FR-PFIZER INC-2013057313

PATIENT
  Age: 71 Year
  Sex: Female

DRUGS (4)
  1. TAHOR [Suspect]
     Indication: PROPHYLAXIS
     Dosage: 20 MG, DAILY
     Route: 048
     Dates: start: 20111116
  2. AMIODARONE [Suspect]
     Indication: PROPHYLAXIS
     Dosage: 200 MG, DAILY
     Route: 048
     Dates: start: 20111116
  3. ISOPTIN SR [Suspect]
     Indication: PROPHYLAXIS
     Dosage: 240 MG (ONE TABLET), DAILY
     Route: 048
     Dates: start: 20111116
  4. DUOPLAVIN [Suspect]
     Indication: PROPHYLAXIS
     Dosage: 1 DF, DAILY
     Route: 048
     Dates: start: 20111116

REACTIONS (2)
  - Haematoma [Not Recovered/Not Resolved]
  - Epistaxis [Not Recovered/Not Resolved]
